FAERS Safety Report 7903329-5 (Version None)
Quarter: 2011Q4

REPORT INFORMATION
  Report Type: 
  Country: None (occurrence: None)
  Receive Date: 20111109
  Receipt Date: 20111108
  Transmission Date: 20120403
  Serious: No
  Sender: FDA-Public Use
  Company Number: US-PFIZER INC-2011263812

PATIENT
  Sex: Male

DRUGS (1)
  1. LYRICA [Suspect]
     Indication: NEUROPATHY PERIPHERAL
     Dosage: UNK
     Dates: start: 20111001

REACTIONS (3)
  - PARAESTHESIA OF GENITAL MALE [None]
  - SENSATION OF HEAVINESS [None]
  - NEUROPATHY PERIPHERAL [None]
